FAERS Safety Report 8207033-8 (Version None)
Quarter: 2012Q1

REPORT INFORMATION
  Report Type: 
  Country: None (occurrence: None)
  Receive Date: 20120314
  Receipt Date: 20120308
  Transmission Date: 20120608
  Serious: Yes (Hospitalization)
  Sender: FDA-Public Use
  Company Number: US-AMGEN-USASP2012015751

PATIENT
  Sex: Female

DRUGS (2)
  1. NEUPOGEN [Suspect]
     Indication: CHEMOTHERAPY
  2. ABRAXANE [Concomitant]
     Indication: BREAST CANCER METASTATIC

REACTIONS (5)
  - PYREXIA [None]
  - BONE PAIN [None]
  - RED BLOOD CELL COUNT DECREASED [None]
  - FEAR [None]
  - STOMATITIS [None]
